FAERS Safety Report 15016293 (Version 1)
Quarter: 2018Q2

REPORT INFORMATION
  Report Type: Spontaneous
  Country: US (occurrence: US)
  Receive Date: 20180523
  Receipt Date: 20180523
  Transmission Date: 20180711
  Serious: Yes (Death, Hospitalization)
  Sender: FDA-Public Use
  Company Number: None

PATIENT
  Age: 14 Year
  Sex: Male

DRUGS (4)
  1. IBRANCE [Suspect]
     Active Substance: PALBOCICLIB
     Indication: SOFT TISSUE SARCOMA
     Route: 048
     Dates: start: 20180425
  2. ZOLINZA [Suspect]
     Active Substance: VORINOSTAT
     Indication: SOFT TISSUE SARCOMA
     Route: 048
     Dates: start: 20180425
  3. MORPHINE [Concomitant]
     Active Substance: MORPHINE
  4. PRECEDEX [Concomitant]
     Active Substance: DEXMEDETOMIDINE HYDROCHLORIDE

REACTIONS (1)
  - Hospitalisation [None]

NARRATIVE: CASE EVENT DATE: 20180521
